FAERS Safety Report 8300589-6 (Version None)
Quarter: 2012Q2

REPORT INFORMATION
  Report Type: 
  Country: None (occurrence: None)
  Receive Date: 20120418
  Receipt Date: 20120418
  Transmission Date: 20120825
  Serious: Yes (Hospitalization)
  Sender: FDA-Public Use
  Company Number: None

PATIENT
  Sex: Female

DRUGS (6)
  1. GABAPENTIN [Concomitant]
  2. CYMBALTA [Concomitant]
  3. HUMULIN R [Suspect]
     Indication: DIABETES MELLITUS
     Dosage: USE AS DIRECTED IN INSULIN PUMP
     Dates: start: 20110101
  4. SIMVASTATIN [Concomitant]
  5. SPIRONOLACTONE [Concomitant]
  6. LOSARTAN POTASSIUM [Concomitant]

REACTIONS (1)
  - BLOOD GLUCOSE INCREASED [None]
